FAERS Safety Report 23398656 (Version 1)
Quarter: 2024Q1

REPORT INFORMATION
  Report Type: Spontaneous
  Country: US (occurrence: US)
  Receive Date: 20240112
  Receipt Date: 20240112
  Transmission Date: 20240410
  Serious: No
  Sender: FDA-Public Use
  Company Number: US-JNJFOC-20231261483

PATIENT
  Age: 8 Decade
  Sex: Female

DRUGS (2)
  1. IMODIUM [Suspect]
     Active Substance: LOPERAMIDE HYDROCHLORIDE
     Indication: Diarrhoea
     Route: 065
     Dates: start: 20231211
  2. TUKYSA [Concomitant]
     Active Substance: TUCATINIB
     Indication: Rectosigmoid cancer
     Route: 065

REACTIONS (1)
  - Constipation [Recovered/Resolved]

NARRATIVE: CASE EVENT DATE: 20231212
